FAERS Safety Report 14173318 (Version 1)
Quarter: 2017Q4

REPORT INFORMATION
  Report Type: Spontaneous
  Country: US (occurrence: US)
  Receive Date: 20171109
  Receipt Date: 20171109
  Transmission Date: 20180321
  Serious: No
  Sender: FDA-Public Use
  Company Number: US-ELI_LILLY_AND_COMPANY-US201710011912

PATIENT
  Sex: Male

DRUGS (3)
  1. HUMALOG [Suspect]
     Active Substance: INSULIN LISPRO
     Dosage: 15 U, TID (10-15 UNITS)
     Route: 058
  2. HUMALOG [Suspect]
     Active Substance: INSULIN LISPRO
     Dosage: 15 U, TID (10-15 UNITS)
     Route: 058
  3. HUMALOG [Suspect]
     Active Substance: INSULIN LISPRO
     Indication: PRODUCT USED FOR UNKNOWN INDICATION
     Dosage: 40 U, UNKNOWN (4-40 UNITS WITH EACH MEAL)
     Route: 058

REACTIONS (7)
  - Visual impairment [Unknown]
  - Mass [Unknown]
  - Blood glucose increased [Unknown]
  - Pollakiuria [Unknown]
  - Limb discomfort [Unknown]
  - Sleep disorder due to general medical condition, insomnia type [Unknown]
  - Glycosylated haemoglobin increased [Unknown]
